FAERS Safety Report 18047370 (Version 1)
Quarter: 2020Q3

REPORT INFORMATION
  Report Type: Spontaneous
  Country: US (occurrence: US)
  Receive Date: 20200720
  Receipt Date: 20200720
  Transmission Date: 20201103
  Serious: Yes (Hospitalization)
  Sender: FDA-Public Use
  Company Number: US-INCYTE CORPORATION-2020IN006905

PATIENT

DRUGS (1)
  1. JAKAFI [Suspect]
     Active Substance: RUXOLITINIB
     Indication: MYELOFIBROSIS
     Dosage: 20 MILLIGRAM, BID
     Route: 048

REACTIONS (6)
  - Fatigue [Unknown]
  - Malaise [Unknown]
  - Anaemia [Unknown]
  - Cardiac valve disease [Unknown]
  - Gastric disorder [Unknown]
  - Diarrhoea [Unknown]
